FAERS Safety Report 11020706 (Version 2)
Quarter: 2015Q2

REPORT INFORMATION
  Report Type: Spontaneous
  Country: JP (occurrence: JP)
  Receive Date: 20150413
  Receipt Date: 20150427
  Transmission Date: 20150821
  Serious: Yes (Hospitalization)
  Sender: FDA-Public Use
  Company Number: JP-ACCORD-029996

PATIENT
  Age: 73 Year
  Sex: Female

DRUGS (6)
  1. RITUXIMAB [Suspect]
     Active Substance: RITUXIMAB
     Indication: B-CELL LYMPHOMA
     Dosage: MONOTHERAPY ONCE. COMBINED WITH FLUDARABINE TWICE. AS CHASE-R.?(500?8)
  2. ETOPOSIDE. [Suspect]
     Active Substance: ETOPOSIDE
     Indication: B-CELL LYMPHOMA
     Dosage: SALVAGE THERAPY CHASE-R.?80 MG X 3
  3. CYCLOPHOSPHAMIDE/CYCLOPHOSPHAMIDE MONOHYDRATE [Suspect]
     Active Substance: CYCLOPHOSPHAMIDE
     Indication: B-CELL LYMPHOMA
     Dosage: SALVAGE THERAPY CHASE-R
  4. FLUDARABINE [Suspect]
     Active Substance: FLUDARABINE PHOSPHATE
     Indication: B-CELL LYMPHOMA
  5. DEXAMETHASONE. [Suspect]
     Active Substance: DEXAMETHASONE
     Indication: B-CELL LYMPHOMA
     Dosage: SALVAGE THERAPY CHASE-R.?19 MG ? 3
  6. CYTARABINE. [Suspect]
     Active Substance: CYTARABINE
     Indication: B-CELL LYMPHOMA
     Dosage: SALVAGE THERAPY CHASE-R.?1000 MG X 2

REACTIONS (1)
  - Hepatitis B [Recovered/Resolved]
